FAERS Safety Report 23975417 (Version 1)
Quarter: 2024Q2

REPORT INFORMATION
  Report Type: Spontaneous
  Country: US (occurrence: US)
  Receive Date: 20240614
  Receipt Date: 20240614
  Transmission Date: 20240716
  Serious: Yes (Other)
  Sender: FDA-Public Use
  Company Number: US-CIPLA LTD.-2024US05804

PATIENT

DRUGS (2)
  1. PRAVASTATIN [Suspect]
     Active Substance: PRAVASTATIN
     Indication: Myocardial infarction
     Dosage: 80 MILLIGRAM, QD, TABLET (TWO TABLETS OF 40 MG ORALLY ONCE DAILY) (1996 OR 1997)
     Route: 048
  2. COENZYME Q10 [Concomitant]
     Active Substance: DIETARY SUPPLEMENT\UBIDECARENONE
     Indication: Adjuvant therapy
     Dosage: 100 MILLIGRAM, QD (ONCE DAILY)
     Route: 048

REACTIONS (4)
  - Renal impairment [Not Recovered/Not Resolved]
  - Product formulation issue [Unknown]
  - Product use issue [Unknown]
  - Myalgia [Not Recovered/Not Resolved]

NARRATIVE: CASE EVENT DATE: 20230101
